FAERS Safety Report 9103147 (Version 3)
Quarter: 2013Q2

REPORT INFORMATION
  Report Type: Report from Study
  Country: US (occurrence: US)
  Receive Date: 20130219
  Receipt Date: 20130513
  Transmission Date: 20140414
  Serious: Yes (Hospitalization)
  Sender: FDA-Public Use
  Company Number: US-US-EMD SERONO, INC.-7193663

PATIENT
  Age: 53 Year
  Sex: Female

DRUGS (3)
  1. REBIF [Suspect]
     Indication: MULTIPLE SCLEROSIS
     Route: 058
  2. REBIF [Suspect]
     Route: 058
     Dates: start: 20130117
  3. REBIF [Suspect]
     Route: 058
     Dates: end: 201302

REACTIONS (9)
  - Electrocardiogram abnormal [Unknown]
  - Hypoaesthesia [Recovering/Resolving]
  - Influenza like illness [Recovered/Resolved]
  - Pain in jaw [Recovered/Resolved]
  - Neutralising antibodies positive [Unknown]
  - White blood cell count increased [Recovering/Resolving]
  - Red blood cell count abnormal [Recovering/Resolving]
  - Musculoskeletal pain [Recovered/Resolved]
  - Neck pain [Recovered/Resolved]
